FAERS Safety Report 10573843 (Version 2)
Quarter: 2014Q4

REPORT INFORMATION
  Report Type: Spontaneous
  Country: US (occurrence: US)
  Receive Date: 20141110
  Receipt Date: 20141119
  Transmission Date: 20150529
  Serious: Yes (Other)
  Sender: FDA-Public Use
  Company Number: GB-SA-2014SA150394

PATIENT
  Age: 61 Year
  Sex: Female

DRUGS (3)
  1. PREDNISONE. [Concomitant]
     Active Substance: PREDNISONE
  2. ALEMTUZUMAB [Suspect]
     Active Substance: ALEMTUZUMAB
     Indication: NEUROMYELITIS OPTICA
     Route: 042
  3. ALEMTUZUMAB [Suspect]
     Active Substance: ALEMTUZUMAB
     Indication: NEUROMYELITIS OPTICA
     Route: 042

REACTIONS (9)
  - Weight decreased [Unknown]
  - Nausea [Unknown]
  - Vomiting [Unknown]
  - Soft tissue injury [Unknown]
  - Off label use [Unknown]
  - Urosepsis [Unknown]
  - Disease progression [Unknown]
  - Clostridium difficile infection [Unknown]
  - Blindness [Unknown]
